FAERS Safety Report 6744127-8 (Version None)
Quarter: 2010Q2

REPORT INFORMATION
  Report Type: 
  Country: None (occurrence: None)
  Receive Date: 20100527
  Receipt Date: 20100517
  Transmission Date: 20101027
  Serious: Yes (Hospitalization)
  Sender: FDA-Public Use
  Company Number: B0653196A

PATIENT
  Sex: Female

DRUGS (11)
  1. DEROXAT [Suspect]
     Indication: DEPRESSION
     Dosage: 20MG PER DAY
     Route: 048
     Dates: end: 20090519
  2. ACTISKENAN [Suspect]
     Indication: BACK PAIN
     Dosage: 10MG THREE TIMES PER DAY
     Route: 048
     Dates: start: 20090401, end: 20090519
  3. DURAGESIC-100 [Suspect]
     Indication: BACK PAIN
     Dosage: 1PAT EVERY 3 DAYS
     Route: 023
     Dates: start: 20090501
  4. NEXIUM [Suspect]
     Indication: DRUG USE FOR UNKNOWN INDICATION
     Dosage: 20MG PER DAY
     Route: 048
  5. DIAMICRON [Suspect]
     Dosage: 30MG PER DAY
     Route: 048
  6. ALDACTONE [Suspect]
     Dosage: 50MG PER DAY
     Route: 048
     Dates: end: 20100519
  7. COVERSYL [Suspect]
     Dosage: 4MG PER DAY
     Route: 048
  8. ARICEPT [Suspect]
     Dosage: 10MG PER DAY
     Route: 048
  9. FOSAMAX [Concomitant]
     Indication: OSTEOPOROSIS
     Dosage: 10MG WEEKLY
     Route: 048
  10. BIPROFENID [Concomitant]
     Indication: PAIN
     Dosage: 150MG THREE TIMES PER DAY
     Route: 048
     Dates: start: 20090517, end: 20090519
  11. DOLIPRANE [Concomitant]
     Indication: PAIN
     Dosage: 1G THREE TIMES PER DAY
     Route: 048

REACTIONS (3)
  - CONFUSIONAL STATE [None]
  - FALL [None]
  - HYPONATRAEMIA [None]
